FAERS Safety Report 16821796 (Version 1)
Quarter: 2019Q3

REPORT INFORMATION
  Report Type: Spontaneous
  Country: IT (occurrence: IT)
  Receive Date: 20190918
  Receipt Date: 20190918
  Transmission Date: 20191005
  Serious: Yes (Hospitalization)
  Sender: FDA-Public Use
  Company Number: IT-MYLANLABS-2019M1085850

PATIENT
  Age: 84 Year
  Sex: Male

DRUGS (10)
  1. DUOPLAVIN [Suspect]
     Active Substance: ASPIRIN\CLOPIDOGREL
     Indication: ANTIPLATELET THERAPY
     Dosage: 175 MILLIGRAM, QD
     Route: 048
     Dates: start: 20160101, end: 20190413
  2. TRIATEC                            /00116401/ [Concomitant]
     Active Substance: ACETAMINOPHEN\CODEINE PHOSPHATE
  3. QUETIAPINE. [Suspect]
     Active Substance: QUETIAPINE
     Indication: ANTIDEPRESSANT THERAPY
     Dosage: 25 MILLIGRAM, QD
     Route: 048
     Dates: start: 20160101
  4. CARDICOR [Concomitant]
     Active Substance: BISOPROLOL
  5. XATRAL                             /00975301/ [Concomitant]
     Active Substance: ALFUZOSIN
  6. TRITTICO [Concomitant]
     Active Substance: TRAZODONE HYDROCHLORIDE
  7. DIAMICRON [Concomitant]
     Active Substance: GLICLAZIDE
  8. LASIX [Concomitant]
     Active Substance: FUROSEMIDE
  9. JANUMET [Concomitant]
     Active Substance: METFORMIN HYDROCHLORIDE\SITAGLIPTIN PHOSPHATE
  10. EBIXA [Concomitant]
     Active Substance: MEMANTINE HYDROCHLORIDE

REACTIONS (1)
  - Melaena [Recovering/Resolving]

NARRATIVE: CASE EVENT DATE: 20190413
